FAERS Safety Report 7552518-0 (Version None)
Quarter: 2011Q2

REPORT INFORMATION
  Report Type: 
  Country: None (occurrence: None)
  Receive Date: 20110616
  Receipt Date: 20110603
  Transmission Date: 20111010
  Serious: Yes (Other)
  Sender: FDA-Public Use
  Company Number: US-ELI_LILLY_AND_COMPANY-US201007007481

PATIENT
  Sex: Female

DRUGS (5)
  1. FORTEO [Suspect]
     Dosage: 20 UG, DAILY (1/D)
  2. FORTEO [Suspect]
     Indication: OSTEOPOROSIS
     Dosage: 20 UG, DAILY (1/D)
     Dates: start: 20100601
  3. FORTEO [Suspect]
     Dosage: 20 UG, DAILY (1/D)
  4. FORTEO [Suspect]
     Dosage: 20 UG, DAILY (1/D)
  5. FORTEO [Suspect]
     Dosage: 20 UG, QD
     Dates: end: 20110227

REACTIONS (16)
  - BACK PAIN [None]
  - FALL [None]
  - BACK DISORDER [None]
  - OPEN WOUND [None]
  - OEDEMA PERIPHERAL [None]
  - WOUND SECRETION [None]
  - WOUND COMPLICATION [None]
  - FEELING ABNORMAL [None]
  - HIP FRACTURE [None]
  - FLUID RETENTION [None]
  - LIMB INJURY [None]
  - DIARRHOEA [None]
  - SCOLIOSIS [None]
  - SKIN INJURY [None]
  - WOUND HAEMORRHAGE [None]
  - LACERATION [None]
